FAERS Safety Report 7095992-9 (Version None)
Quarter: 2010Q4

REPORT INFORMATION
  Report Type: 
  Country: None (occurrence: None)
  Receive Date: 20101109
  Receipt Date: 20101109
  Transmission Date: 20110411
  Serious: Yes (Other)
  Sender: FDA-Public Use
  Company Number: None

PATIENT
  Age: 6 Year
  Sex: Female
  Weight: 39.0093 kg

DRUGS (1)
  1. DESMOPRESSIN ACETATE [Suspect]
     Indication: BLADDER DISORDER
     Dosage: 2 SPRAYS PER NOSTRIL ONCE A NIGHT NASAL   2-3 WEEKS
     Route: 045

REACTIONS (2)
  - HYPERSENSITIVITY [None]
  - TIC [None]
